FAERS Safety Report 20101072 (Version 2)
Quarter: 2021Q4

REPORT INFORMATION
  Report Type: Spontaneous
  Country: US (occurrence: US)
  Receive Date: 20211123
  Receipt Date: 20211220
  Transmission Date: 20220303
  Serious: No
  Sender: FDA-Public Use
  Company Number: US-MYLANLABS-2021M1083475

PATIENT
  Age: 50 Year
  Sex: Female

DRUGS (1)
  1. ESTRADIOL TRANSDERMAL SYSTEM [Suspect]
     Active Substance: ESTRADIOL
     Indication: Product used for unknown indication
     Dosage: UNK
     Route: 062

REACTIONS (4)
  - Scar [Unknown]
  - Rash [Unknown]
  - Application site pruritus [Recovered/Resolved]
  - Application site burn [Not Recovered/Not Resolved]

NARRATIVE: CASE EVENT DATE: 20211001
